FAERS Safety Report 8081221-6 (Version None)
Quarter: 2012Q1

REPORT INFORMATION
  Report Type: 
  Country: None (occurrence: None)
  Receive Date: 20120130
  Receipt Date: 20120125
  Transmission Date: 20120608
  Serious: No
  Sender: FDA-Public Use
  Company Number: US-PFIZER INC-2012021674

PATIENT
  Sex: Female
  Weight: 113 kg

DRUGS (4)
  1. CARDIZEM [Concomitant]
     Indication: HYPERTENSION
     Dosage: 300 MG, UNK
  2. DIOVAN HCT [Concomitant]
     Indication: HYPERTENSION
     Dosage: 160/25MG, UNK
  3. LYRICA [Suspect]
     Indication: SCIATICA
     Dosage: 75 MG, 2X/DAY
     Dates: start: 20111215
  4. LIPITOR [Concomitant]
     Indication: BLOOD CHOLESTEROL INCREASED
     Dosage: 10 MG, UNK

REACTIONS (11)
  - SOMNOLENCE [None]
  - CONFUSIONAL STATE [None]
  - DEPRESSION [None]
  - GAIT DISTURBANCE [None]
  - GROIN PAIN [None]
  - MOOD ALTERED [None]
  - FALL [None]
  - DISTURBANCE IN ATTENTION [None]
  - INJURY [None]
  - DIZZINESS [None]
  - HEADACHE [None]
